FAERS Safety Report 5900413-2 (Version None)
Quarter: 2008Q3

REPORT INFORMATION
  Report Type: 
  Country: None (occurrence: None)
  Receive Date: 20080926
  Receipt Date: 20080527
  Transmission Date: 20090109
  Serious: Yes (Death)
  Sender: FDA-Public Use
  Company Number: PH-PFIZER INC-2008045591

PATIENT
  Sex: Male
  Weight: 38 kg

DRUGS (4)
  1. SULPERAZONE [Suspect]
     Indication: SEPSIS
     Dates: end: 20080512
  2. TAZOCIN [Concomitant]
  3. CEPIMAX [Concomitant]
  4. MEROPENEM [Concomitant]

REACTIONS (2)
  - ACUTE RESPIRATORY FAILURE [None]
  - METASTASIS [None]
